FAERS Safety Report 9034156 (Version 1)
Quarter: 2013Q1

REPORT INFORMATION
  Report Type: Spontaneous
  Country: US (occurrence: None)
  Receive Date: 20130116
  Receipt Date: 20130116
  Transmission Date: 20140127
  Serious: Yes (Other)
  Sender: FDA-Public Use
  Company Number: None

PATIENT
  Age: 72 Year
  Sex: Male
  Weight: 90 kg

DRUGS (2)
  1. VANCOMYCIN [Suspect]
     Dosage: Q18H
     Route: 042
     Dates: start: 20130112, end: 20130114
  2. ZOSYN [Suspect]
     Route: 042
     Dates: start: 20130112, end: 20130114

REACTIONS (1)
  - Blood creatinine increased [None]
